FAERS Safety Report 12286818 (Version 8)
Quarter: 2016Q3

REPORT INFORMATION
  Report Type: Report from Study
  Country: US (occurrence: US)
  Receive Date: 20160420
  Receipt Date: 20160913
  Transmission Date: 20161109
  Serious: Yes (Death, Hospitalization)
  Sender: FDA-Public Use
  Company Number: US-BIOGEN-2016BI00220882

PATIENT
  Sex: Female

DRUGS (1)
  1. TYSABRI [Suspect]
     Active Substance: NATALIZUMAB
     Indication: MULTIPLE SCLEROSIS
     Route: 042
     Dates: start: 20100106, end: 20160318

REACTIONS (4)
  - Pneumonia [Unknown]
  - Brain neoplasm malignant [Fatal]
  - Progressive multifocal leukoencephalopathy [Unknown]
  - Nephrolithiasis [Unknown]
